FAERS Safety Report 15689818 (Version 1)
Quarter: 2018Q4

REPORT INFORMATION
  Report Type: Spontaneous
  Country: US (occurrence: US)
  Receive Date: 20181205
  Receipt Date: 20181205
  Transmission Date: 20190205
  Serious: No
  Sender: FDA-Public Use
  Company Number: US-VERTEX PHARMACEUTICALS-2018-009017

PATIENT
  Age: 8 Year
  Sex: Male

DRUGS (12)
  1. MELATONIN [Concomitant]
     Active Substance: MELATONIN
  2. HYPERSAL [Concomitant]
  3. PULMOZYME [Concomitant]
     Active Substance: DORNASE ALFA
  4. CYPROHEPTADINE. [Concomitant]
     Active Substance: CYPROHEPTADINE
  5. CREON [Concomitant]
     Active Substance: PANCRELIPASE AMYLASE\PANCRELIPASE LIPASE\PANCRELIPASE PROTEASE
  6. OMEPRAZOLE. [Concomitant]
     Active Substance: OMEPRAZOLE
  7. ZOLOFT [Concomitant]
     Active Substance: SERTRALINE HYDROCHLORIDE
  8. ORKAMBI [Suspect]
     Active Substance: IVACAFTOR\LUMACAFTOR
     Indication: CYSTIC FIBROSIS
     Dosage: 200/250 MG, BID
     Route: 048
     Dates: start: 20161217
  9. SODIUM CHLORIDE. [Concomitant]
     Active Substance: SODIUM CHLORIDE
  10. VENTOLIN [Concomitant]
     Active Substance: ALBUTEROL SULFATE
  11. FOLIC ACID. [Concomitant]
     Active Substance: FOLIC ACID
  12. MIRALAX [Concomitant]
     Active Substance: POLYETHYLENE GLYCOL 3350

REACTIONS (1)
  - Malaise [Unknown]

NARRATIVE: CASE EVENT DATE: 20181121
